FAERS Safety Report 8131131-0 (Version None)
Quarter: 2012Q1

REPORT INFORMATION
  Report Type: 
  Country: None (occurrence: None)
  Receive Date: 20120207
  Receipt Date: 20120130
  Transmission Date: 20120608
  Serious: Yes (Other)
  Sender: FDA-Public Use
  Company Number: ACO_28266_2011

PATIENT
  Age: 54 Year
  Sex: Female

DRUGS (3)
  1. AMPYRA [Suspect]
     Indication: GAIT DISTURBANCE
     Dosage: 10 MG, Q 12 HRS
     Dates: start: 20110601
  2. CELEXA [Concomitant]
  3. SERQUEL (QUETIAPINE FUMARATE) [Concomitant]

REACTIONS (2)
  - HALLUCINATION [None]
  - MANIA [None]
